FAERS Safety Report 9719311 (Version 1)
Quarter: 2013Q4

REPORT INFORMATION
  Report Type: Spontaneous
  Country: US (occurrence: US)
  Receive Date: 20131127
  Receipt Date: 20131127
  Transmission Date: 20140711
  Serious: Yes (Other)
  Sender: FDA-Public Use
  Company Number: PHEH2013US024699

PATIENT
  Sex: Male

DRUGS (9)
  1. DIOVAN HCT [Suspect]
     Dosage: 1 DF, (160 MG VALS, 25 MG HCTZ)UNK
  2. CLONIDINE [Concomitant]
     Dosage: UNK UKN, UNK
  3. HYDROXYZINE [Concomitant]
     Dosage: UNK UKN, UNK
  4. FAMOTIDINE [Concomitant]
     Dosage: UNK UKN, UNK
  5. TERAZOSIN [Concomitant]
     Dosage: UNK UKN, UNK
  6. POTASSIUM [Concomitant]
     Dosage: UNK UKN, UNK
  7. ASPIRIN [Concomitant]
     Dosage: UNK UKN, UNK
  8. CLOPIDOGREL [Concomitant]
     Dosage: UNK UKN, UNK
  9. NADOLOL [Concomitant]
     Dosage: UNK UKN, UNK

REACTIONS (1)
  - Cerebrovascular accident [Unknown]
